FAERS Safety Report 4582233-7 (Version None)
Quarter: 2005Q1

REPORT INFORMATION
  Report Type: 
  Country: None (occurrence: None)
  Receive Date: 20050210
  Receipt Date: 20050210
  Transmission Date: 20050727
  Serious: Yes (Hospitalization)
  Sender: FDA-Public Use
  Company Number: None

PATIENT
  Sex: Male
  Weight: 72.1219 kg

DRUGS (18)
  1. GEMCITABINE (LILLY MANUFACTURER) [Suspect]
     Indication: PANCREATIC CARCINOMA
     Dosage: 1000 MG/M2 (042) WEEKLY
     Dates: start: 20050105
  2. GEMCITABINE (LILLY MANUFACTURER) [Suspect]
     Indication: PANCREATIC CARCINOMA
     Dosage: 1000 MG/M2 (042) WEEKLY
     Dates: start: 20050119
  3. GEMCITABINE (LILLY MANUFACTURER) [Suspect]
     Indication: PANCREATIC CARCINOMA
     Dosage: 1000 MG/M2 (042) WEEKLY
     Dates: start: 20050126
  4. LASIX [Suspect]
     Indication: OEDEMA PERIPHERAL
     Dosage: 40 MG (047) QD
     Dates: start: 20050124, end: 20050128
  5. ALCOHOL PREP PAD [Concomitant]
  6. CLINDAMYCIN PHOSPHATE [Concomitant]
  7. DOCUSATE NA [Concomitant]
  8. EPOETIN ALFA [Concomitant]
  9. FENTANYL [Concomitant]
  10. FUROSEMIDE [Concomitant]
  11. INSULIN SYRINGE [Concomitant]
  12. MEGESTROL ACETATE [Concomitant]
  13. MORPHINE [Concomitant]
  14. PANTOPRAZOLE NA [Concomitant]
  15. POTASSIUM CHLORIDE [Concomitant]
  16. PRECISION Q-I-D GLUCOSE TEST STRIP [Concomitant]
  17. TUBERCULIN SYRINGE [Concomitant]
  18. WINGS MAXICARE UNDERGARMENT [Concomitant]

REACTIONS (23)
  - ANAEMIA [None]
  - BLOOD CULTURE POSITIVE [None]
  - CARDIAC FAILURE CONGESTIVE [None]
  - CONFUSIONAL STATE [None]
  - CULTURE URINE POSITIVE [None]
  - DYSPNOEA [None]
  - ESCHERICHIA INFECTION [None]
  - GENERALISED OEDEMA [None]
  - HYPOALBUMINAEMIA [None]
  - HYPOKALAEMIA [None]
  - HYPOTENSION [None]
  - HYPOVOLAEMIA [None]
  - MALNUTRITION [None]
  - MYOCARDIAL INFARCTION [None]
  - NEUTROPENIA [None]
  - PANCYTOPENIA [None]
  - PULMONARY OEDEMA [None]
  - RENAL FAILURE ACUTE [None]
  - RENAL FAILURE CHRONIC [None]
  - SEPSIS SYNDROME [None]
  - THROMBOCYTOPENIA [None]
  - URINARY TRACT INFECTION [None]
  - UROSEPSIS [None]
